FAERS Safety Report 6660606-6 (Version None)
Quarter: 2010Q1

REPORT INFORMATION
  Report Type: 
  Country: None (occurrence: None)
  Receive Date: 20100331
  Receipt Date: 20100323
  Transmission Date: 20100710
  Serious: Yes (Other)
  Sender: FDA-Public Use
  Company Number: JP-BAYER-200813181BYL

PATIENT
  Age: 59 Year
  Sex: Female
  Weight: 46 kg

DRUGS (3)
  1. NEXAVAR [Suspect]
     Indication: RENAL CELL CARCINOMA
     Dosage: UNIT DOSE: 200 MG
     Route: 048
     Dates: start: 20081007, end: 20081017
  2. NEXAVAR [Suspect]
     Dosage: UNIT DOSE: 200 MG
     Route: 048
     Dates: start: 20081118, end: 20081118
  3. CANDESARTAN CILEXETIL [Concomitant]
     Dosage: UNIT DOSE: 4 MG
     Route: 048
     Dates: start: 20080926, end: 20081025

REACTIONS (3)
  - MUCOUS MEMBRANE DISORDER [None]
  - PYREXIA [None]
  - RASH [None]
